FAERS Safety Report 11137135 (Version 2)
Quarter: 2016Q2

REPORT INFORMATION
  Report Type: Report from Study
  Country: US (occurrence: US)
  Receive Date: 20150526
  Receipt Date: 20160516
  Transmission Date: 20160815
  Serious: No
  Sender: FDA-Public Use
  Company Number: US-MALLINCKRODT-T201501138

PATIENT
  Sex: Female
  Weight: 50 kg

DRUGS (6)
  1. CALCIUM [Concomitant]
     Active Substance: CALCIUM
  2. FISH OIL [Concomitant]
     Active Substance: FISH OIL
  3. CENTRUM [Concomitant]
     Active Substance: VITAMINS
  4. IRON [Concomitant]
     Active Substance: IRON
  5. REPOSITORY CORTICOTROPIN INJECTION [Suspect]
     Active Substance: CORTICOTROPIN
     Indication: SYSTEMIC LUPUS ERYTHEMATOSUS
     Dosage: 80 UNITS TWICE PER WEEK
     Route: 030
     Dates: start: 20141201
  6. PREDNISONE. [Concomitant]
     Active Substance: PREDNISONE
     Dosage: 10 MG

REACTIONS (7)
  - Injection site discolouration [Unknown]
  - Joint instability [Unknown]
  - Bone disorder [Unknown]
  - Glare [Not Recovered/Not Resolved]
  - Injection site bruising [Unknown]
  - Dry eye [Unknown]
  - Increased appetite [Unknown]

NARRATIVE: CASE EVENT DATE: 2015
